FAERS Safety Report 18723685 (Version 3)
Quarter: 2021Q1

REPORT INFORMATION
  Report Type: Spontaneous
  Country: IT (occurrence: IT)
  Receive Date: 20210111
  Receipt Date: 20210211
  Transmission Date: 20210419
  Serious: Yes (Other)
  Sender: FDA-Public Use
  Company Number: IT-ACCORD-214000

PATIENT
  Age: 41 Year
  Sex: Female

DRUGS (8)
  1. IRINOTECAN [Suspect]
     Active Substance: IRINOTECAN
     Indication: CYSTADENOCARCINOMA PANCREAS
     Dosage: EVERY 2 WEEKS
     Dates: start: 2019, end: 202001
  2. FOLINIC ACID [Suspect]
     Active Substance: LEUCOVORIN
     Indication: METASTASES TO PERITONEUM
     Dates: start: 2019, end: 202001
  3. OXALIPLATIN. [Suspect]
     Active Substance: OXALIPLATIN
     Indication: METASTASES TO OVARY
     Dosage: EVERY 2 WEEKS
     Dates: start: 2019, end: 202001
  4. IRINOTECAN [Suspect]
     Active Substance: IRINOTECAN
     Indication: METASTASES TO PERITONEUM
     Dosage: EVERY 2 WEEKS
     Dates: start: 2019, end: 202001
  5. FOLINIC ACID [Suspect]
     Active Substance: LEUCOVORIN
     Indication: CYSTADENOCARCINOMA PANCREAS
     Dates: start: 2019, end: 202001
  6. OXALIPLATIN. [Suspect]
     Active Substance: OXALIPLATIN
     Indication: METASTASES TO PERITONEUM
     Dosage: EVERY 2 WEEKS
     Dates: start: 2019, end: 202001
  7. FLUOROURACIL. [Suspect]
     Active Substance: FLUOROURACIL
     Indication: CYSTADENOCARCINOMA PANCREAS
     Dosage: 46?HOUR CONTINUOUS INFUSION, EVERY 2 WEEKS
     Dates: start: 2019, end: 202001
  8. FLUOROURACIL. [Suspect]
     Active Substance: FLUOROURACIL
     Indication: CYSTADENOCARCINOMA PANCREAS
     Dosage: BOLUS, EVERY 2 WEEKS, 46 H CONTINUOUS INFUSION, EVERY TWO WEEKS
     Dates: start: 2019, end: 202001

REACTIONS (3)
  - Febrile neutropenia [Unknown]
  - Off label use [Unknown]
  - Vomiting [Unknown]

NARRATIVE: CASE EVENT DATE: 202001
